FAERS Safety Report 17846785 (Version 1)
Quarter: 2020Q2

REPORT INFORMATION
  Report Type: Spontaneous
  Country: US (occurrence: US)
  Receive Date: 20200601
  Receipt Date: 20200601
  Transmission Date: 20200714
  Serious: No
  Sender: FDA-Public Use
  Company Number: US-UPSHER-SMITH LABORATORIES, LLC-2019USL00939

PATIENT
  Age: 94 Year
  Sex: Female

DRUGS (5)
  1. AMIODARONE HYDROCHLORIDE. [Suspect]
     Active Substance: AMIODARONE HYDROCHLORIDE
     Dosage: UNK
  2. ELIQUIS [Suspect]
     Active Substance: APIXABAN
     Dosage: UNK
  3. PAROXETINE (ZYDUS) [Suspect]
     Active Substance: PAROXETINE
     Dosage: 20 MG, 1X/DAY
     Route: 048
     Dates: start: 20190927
  4. PAROXETINE (ZYDUS) [Suspect]
     Active Substance: PAROXETINE
     Dosage: 20 MG, 1X/DAY
     Route: 048
     Dates: end: 201909
  5. TRAMADOL. [Suspect]
     Active Substance: TRAMADOL
     Dosage: 50 MG, 1X/DAY
     Route: 048

REACTIONS (9)
  - Decreased appetite [Not Recovered/Not Resolved]
  - Disturbance in attention [Not Recovered/Not Resolved]
  - Dyspnoea [Not Recovered/Not Resolved]
  - Somnolence [Not Recovered/Not Resolved]
  - Confusional state [Recovered/Resolved]
  - Dysarthria [Recovered/Resolved]
  - Anxiety [Not Recovered/Not Resolved]
  - Hallucination [Recovered/Resolved]
  - Asthenia [Not Recovered/Not Resolved]

NARRATIVE: CASE EVENT DATE: 20190929
